FAERS Safety Report 9866531 (Version 3)
Quarter: 2014Q2

REPORT INFORMATION
  Report Type: Report from Study
  Country: FR (occurrence: FR)
  Receive Date: 20140204
  Receipt Date: 20140403
  Transmission Date: 20141212
  Serious: Yes (Other)
  Sender: FDA-Public Use
  Company Number: FR-BIOGENIDEC-2014BI006968

PATIENT
  Age: 49 Year
  Sex: Female
  Weight: 76 kg

DRUGS (6)
  1. BG00012 [Suspect]
     Indication: MULTIPLE SCLEROSIS
     Route: 048
     Dates: start: 20110419
  2. LUDEAL [Concomitant]
     Indication: CONTRACEPTION
     Route: 048
     Dates: start: 2004
  3. LYSANXIA [Concomitant]
  4. TEGRETOL [Concomitant]
  5. DOLIPRANE [Concomitant]
  6. LAROXYL [Concomitant]

REACTIONS (1)
  - Cervical dysplasia [Recovered/Resolved]
